FAERS Safety Report 5351030-7 (Version None)
Quarter: 2007Q2

REPORT INFORMATION
  Report Type: 
  Country: None (occurrence: None)
  Receive Date: 20070606
  Receipt Date: 20070522
  Transmission Date: 20071010
  Serious: Yes (Other)
  Sender: FDA-Public Use
  Company Number: 2007US-07612

PATIENT

DRUGS (1)
  1. METFORMIN HYDROCHLORIDE [Suspect]

REACTIONS (4)
  - BLOOD CREATININE INCREASED [None]
  - BLOOD POTASSIUM INCREASED [None]
  - ELECTROCARDIOGRAM ABNORMAL [None]
  - HYPONATRAEMIC SYNDROME [None]
